FAERS Safety Report 5773131-1 (Version None)
Quarter: 2008Q2

REPORT INFORMATION
  Report Type: 
  Country: None (occurrence: None)
  Receive Date: 20080615
  Receipt Date: 20080331
  Transmission Date: 20081010
  Serious: No
  Sender: FDA-Public Use
  Company Number: US-BAYER-200811419BCC

PATIENT
  Age: 70 Year
  Sex: Female
  Weight: 57 kg

DRUGS (4)
  1. ALEVE [Suspect]
     Indication: PROPHYLAXIS
     Dosage: TOTAL DAILY DOSE: 880 MG  UNIT DOSE: 220 MG
     Route: 048
     Dates: start: 20080301, end: 20080301
  2. ALEVE [Suspect]
     Dosage: TOTAL DAILY DOSE: 880 MG  UNIT DOSE: 220 MG
     Route: 048
     Dates: start: 20080329
  3. LIPITOR [Concomitant]
  4. HIGH BLOOD PRESSURE PILL [Concomitant]

REACTIONS (1)
  - NAUSEA [None]
